FAERS Safety Report 8826179 (Version 1)
Quarter: 2012Q4

REPORT INFORMATION
  Report Type: 
  Country: US (occurrence: US)
  Receive Date: 20121008
  Receipt Date: 20121008
  Transmission Date: 20130627
  Serious: Yes (Hospitalization)
  Sender: FDA-Public Use
  Company Number: US-ELI_LILLY_AND_COMPANY-US201209007502

PATIENT
  Age: 43 Year
  Sex: Female

DRUGS (4)
  1. CYMBALTA [Suspect]
     Indication: FIBROMYALGIA
     Dosage: 90 mg, unknown
     Dates: start: 2007, end: 2010
  2. CYMBALTA [Suspect]
     Dosage: 30 mg, unknown
     Dates: start: 2010
  3. CYMBALTA [Suspect]
     Dosage: 60 mg, unknown
     Dates: start: 2010
  4. ANTIHYPERTENSIVES [Concomitant]

REACTIONS (13)
  - Uterine cancer [Recovering/Resolving]
  - Menorrhagia [Unknown]
  - Drug withdrawal syndrome [Unknown]
  - Crying [Unknown]
  - Feeling abnormal [Unknown]
  - Influenza [Unknown]
  - Headache [Unknown]
  - Pain [Unknown]
  - Anxiety [Unknown]
  - Dizziness [Unknown]
  - Myalgia [Unknown]
  - Arthralgia [Unknown]
  - Drug dispensing error [Not Recovered/Not Resolved]
